FAERS Safety Report 9129874 (Version 1)
Quarter: 2013Q1

REPORT INFORMATION
  Report Type: Spontaneous
  Country: US (occurrence: US)
  Receive Date: 20130228
  Receipt Date: 20130228
  Transmission Date: 20140127
  Serious: Yes (Other)
  Sender: FDA-Public Use
  Company Number: US-PFIZER INC-2013070306

PATIENT
  Age: 57 Year
  Sex: Female
  Weight: 84 kg

DRUGS (2)
  1. DILANTIN [Suspect]
     Indication: CONVULSION
     Dosage: 100 MG, 3X/DAY
  2. CARBATROL [Suspect]
     Dosage: UNK

REACTIONS (6)
  - Convulsion [Unknown]
  - Gingival swelling [Unknown]
  - Gingival pain [Unknown]
  - Somnolence [Unknown]
  - Hypersomnia [Unknown]
  - Fatigue [Unknown]
